FAERS Safety Report 17870939 (Version 1)
Quarter: 2020Q2

REPORT INFORMATION
  Report Type: Spontaneous
  Country: PL (occurrence: PL)
  Receive Date: 20200608
  Receipt Date: 20200608
  Transmission Date: 20200714
  Serious: Yes (Other)
  Sender: FDA-Public Use
  Company Number: PL-CELLTRION-2020-PL-000048

PATIENT
  Age: 51 Year
  Sex: Female

DRUGS (4)
  1. LITHIUM. [Suspect]
     Active Substance: LITHIUM
     Indication: BIPOLAR DISORDER
     Dosage: UP TO 1000 MG
     Route: 065
  2. ARIPIPRAZOLE. [Suspect]
     Active Substance: ARIPIPRAZOLE
     Indication: DELUSION
     Dosage: 30 MG DAILY (TITRATED FROM 7.5 MG DAILY)
     Route: 065
  3. QUETIAPINE. [Suspect]
     Active Substance: QUETIAPINE
     Indication: BIPOLAR DISORDER
     Dosage: UP TO 400 MG DAILY
     Route: 065
  4. LAMOTRIGINE (NON-SPECIFIC) [Suspect]
     Active Substance: LAMOTRIGINE
     Indication: AFFECTIVE DISORDER
     Dosage: 200 MG DAILY (TITRATED FROM 25 MG DAILY)
     Route: 065

REACTIONS (1)
  - Neuroleptic malignant syndrome [Unknown]
